FAERS Safety Report 6363609-4 (Version None)
Quarter: 2009Q3

REPORT INFORMATION
  Report Type: 
  Country: None (occurrence: None)
  Receive Date: 20090919
  Receipt Date: 20090629
  Transmission Date: 20100115
  Serious: No
  Sender: FDA-Public Use
  Company Number: US-ABBOTT-09P-163-0582902-00

PATIENT
  Sex: Female
  Weight: 56.75 kg

DRUGS (8)
  1. HUMIRA [Suspect]
     Indication: PSORIATIC ARTHROPATHY
     Route: 058
     Dates: start: 20080601
  2. METFORMIN HCL [Concomitant]
     Indication: TYPE 2 DIABETES MELLITUS
     Route: 048
  3. DIOVAN [Concomitant]
     Indication: HYPERTENSION
     Route: 048
  4. PROGESTERON/ESTROGEN COMPOUND [Concomitant]
     Indication: HORMONE REPLACEMENT THERAPY
     Route: 048
  5. OSTEO BIFLEX [Concomitant]
     Indication: ARTHRITIS
     Route: 048
  6. MULTI-VITAMIN [Concomitant]
     Indication: MEDICAL DIET
     Route: 048
  7. VITAMIN B6 [Concomitant]
     Indication: MEDICAL DIET
     Route: 048
  8. TYLENOL (CAPLET) [Concomitant]
     Indication: PAIN
     Route: 048

REACTIONS (3)
  - PRODUCTIVE COUGH [None]
  - PYREXIA [None]
  - TUBERCULIN TEST POSITIVE [None]
